FAERS Safety Report 19214802 (Version 2)
Quarter: 2021Q2

REPORT INFORMATION
  Report Type: Spontaneous
  Country: PT (occurrence: PT)
  Receive Date: 20210505
  Receipt Date: 20210510
  Transmission Date: 20210717
  Serious: Yes (Other)
  Sender: FDA-Public Use
  Company Number: PT-B.I. PHARMACEUTICALS,INC./RIDGEFIELD-2021-BI-100371

PATIENT
  Age: 53 Year
  Sex: Female

DRUGS (16)
  1. RALTEGRAVIR. [Suspect]
     Active Substance: RALTEGRAVIR
     Indication: HIV INFECTION
     Dosage: DOSE: 2
     Route: 065
     Dates: start: 201507
  2. RITONAVIR. [Suspect]
     Active Substance: RITONAVIR
     Indication: HIV INFECTION
     Dates: start: 2009
  3. EMTRICITABINE [Suspect]
     Active Substance: EMTRICITABINE
     Indication: HIV INFECTION
     Dates: start: 2010
  4. PREZISTA [Suspect]
     Active Substance: DARUNAVIR ETHANOLATE
     Indication: HIV INFECTION
     Route: 065
     Dates: start: 2009
  5. RITONAVIR. [Suspect]
     Active Substance: RITONAVIR
     Indication: HEPATITIS C
     Dosage: DOSE: 2
     Dates: start: 201605
  6. TENOFOVIR [Suspect]
     Active Substance: TENOFOVIR
     Indication: HIV INFECTION
  7. DOLUTEGRAVIR [Suspect]
     Active Substance: DOLUTEGRAVIR
     Dosage: DOSE : 1
  8. DOLUTEGRAVIR [Suspect]
     Active Substance: DOLUTEGRAVIR
     Indication: HIV INFECTION
     Dosage: DOSE : 2
     Route: 065
  9. EMTRICITABINE + TENOFOVIR DISOPROXIL FUMARATE [Suspect]
     Active Substance: EMTRICITABINE\TENOFOVIR DISOPROXIL FUMARATE
     Indication: HIV INFECTION
     Route: 065
     Dates: start: 2010
  10. RALTEGRAVIR. [Suspect]
     Active Substance: RALTEGRAVIR
     Indication: HEPATITIS C
  11. EMTRICITABINE [Suspect]
     Active Substance: EMTRICITABINE
     Indication: HEPATITIS C
  12. DARUNAVIR [Suspect]
     Active Substance: DARUNAVIR
     Dosage: DOSE: 2
     Route: 048
     Dates: start: 201507
  13. DARUNAVIR [Suspect]
     Active Substance: DARUNAVIR
     Indication: HIV INFECTION
     Route: 048
     Dates: start: 2009
  14. DARUNAVIR [Suspect]
     Active Substance: DARUNAVIR
     Dosage: DOSE: 2
     Route: 048
     Dates: start: 201605
  15. VIRAMUNE [Suspect]
     Active Substance: NEVIRAPINE
     Indication: HIV INFECTION
     Route: 065
     Dates: start: 2010
  16. TENOFOVIR [Suspect]
     Active Substance: TENOFOVIR
     Indication: HEPATITIS C
     Dates: start: 2010

REACTIONS (4)
  - Product use issue [Unknown]
  - Drug resistance [Unknown]
  - Off label use [Unknown]
  - Viral load increased [Unknown]

NARRATIVE: CASE EVENT DATE: 2010
